FAERS Safety Report 9758389 (Version 1)
Quarter: 2013Q4

REPORT INFORMATION
  Report Type: Spontaneous
  Country: DE (occurrence: DE)
  Receive Date: 20131216
  Receipt Date: 20131216
  Transmission Date: 20140711
  Serious: Yes (Other)
  Sender: FDA-Public Use
  Company Number: DE-MYLANLABS-2013S1027208

PATIENT
  Age: 35 Year
  Sex: Male

DRUGS (4)
  1. CABERGOLINE [Suspect]
     Indication: BLOOD PROLACTIN INCREASED
     Dates: start: 201309
  2. CORTISON [Concomitant]
     Indication: PRODUCT USED FOR UNKNOWN INDICATION
     Dosage: 10 MG TABLET
     Route: 048
  3. DESMOPRESSIN [Concomitant]
     Indication: PRODUCT USED FOR UNKNOWN INDICATION
     Dosage: TABLET
     Route: 048
  4. NORPROLAC [Concomitant]
     Indication: PRODUCT USED FOR UNKNOWN INDICATION
     Dosage: TABLET
     Route: 048

REACTIONS (1)
  - Visual acuity reduced [Unknown]
